FAERS Safety Report 11720262 (Version 1)
Quarter: 2015Q4

REPORT INFORMATION
  Report Type: Spontaneous
  Country: CH (occurrence: CH)
  Receive Date: 20151110
  Receipt Date: 20151110
  Transmission Date: 20160304
  Serious: Yes (Hospitalization, Other)
  Sender: FDA-Public Use
  Company Number: CH-ASTRAZENECA-2015SF06984

PATIENT
  Age: 27006 Day
  Sex: Female
  Weight: 68 kg

DRUGS (11)
  1. MAGNESIOCARD [Concomitant]
     Active Substance: MAGNESIUM ASPARTATE HYDROCHLORIDE
     Route: 048
  2. ASPIRIN CARDIO [Concomitant]
     Active Substance: ASPIRIN
  3. AMLODIPIN [Concomitant]
     Active Substance: AMLODIPINE BESYLATE
     Indication: HYPERTENSION
     Route: 048
  4. ATORVASTATIN [Concomitant]
     Active Substance: ATORVASTATIN
     Route: 048
  5. KEPPRA [Concomitant]
     Active Substance: LEVETIRACETAM
     Indication: STATUS EPILEPTICUS
     Route: 048
     Dates: start: 20151005
  6. CLAMOXYL [Concomitant]
     Active Substance: AMOXICILLIN\CLAVULANIC ACID
     Indication: ENCEPHALITIS
     Dates: start: 20151005, end: 20151006
  7. ZOVIRAX [Suspect]
     Active Substance: ACYCLOVIR
     Indication: HERPES SIMPLEX ENCEPHALITIS
     Route: 042
     Dates: start: 20151004
  8. DISOPRIVAN [Concomitant]
     Active Substance: PROPOFOL
     Indication: LIGHT ANAESTHESIA
     Route: 040
  9. PHENHYDAN [Concomitant]
     Active Substance: PHENYTOIN
     Indication: STATUS EPILEPTICUS
     Route: 042
     Dates: start: 20151005, end: 20151006
  10. ATACAND [Suspect]
     Active Substance: CANDESARTAN CILEXETIL
     Indication: HYPERTENSION
     Route: 048
  11. IOMERON [Suspect]
     Active Substance: IOMEPROL
     Indication: COMPUTERISED TOMOGRAM HEAD
     Route: 040
     Dates: start: 20151004, end: 20151004

REACTIONS (5)
  - Neurological decompensation [Unknown]
  - Status epilepticus [Unknown]
  - Central nervous system lesion [Unknown]
  - Acute kidney injury [Recovered/Resolved]
  - Herpes simplex encephalitis [Unknown]

NARRATIVE: CASE EVENT DATE: 20151006
